FAERS Safety Report 24840931 (Version 1)
Quarter: 2025Q1

REPORT INFORMATION
  Report Type: Spontaneous
  Country: CA (occurrence: CA)
  Receive Date: 20250114
  Receipt Date: 20250114
  Transmission Date: 20250409
  Serious: Yes (Disabling, Other)
  Sender: HIKMA
  Company Number: CA-HIKMA PHARMACEUTICALS USA INC.-CA-H14001-25-00160

PATIENT
  Age: 46 Year
  Sex: Male

DRUGS (2)
  1. CYANOCOBALAMIN [Suspect]
     Active Substance: CYANOCOBALAMIN
     Indication: Product used for unknown indication
     Route: 065
  2. REMICADE [Suspect]
     Active Substance: INFLIXIMAB
     Indication: Crohn^s disease
     Route: 041

REACTIONS (5)
  - Conjunctivitis [Recovering/Resolving]
  - Crohn^s disease [Recovering/Resolving]
  - Dry eye [Recovering/Resolving]
  - Eye infection [Recovering/Resolving]
  - Drug ineffective [Recovering/Resolving]
